FAERS Safety Report 9120391 (Version 2)
Quarter: 2013Q1

REPORT INFORMATION
  Report Type: Spontaneous
  Country: AU (occurrence: AU)
  Receive Date: 20130226
  Receipt Date: 20130311
  Transmission Date: 20140127
  Serious: Yes (Death)
  Sender: FDA-Public Use
  Company Number: AU-B.I. PHARMACEUTICALS,INC./RIDGEFIELD-2013-AU-00201AU

PATIENT
  Sex: Male
  Weight: 44 kg

DRUGS (3)
  1. PRADAXA [Suspect]
     Indication: CEREBROVASCULAR ACCIDENT PROPHYLAXIS
     Dosage: 220 MG
     Dates: start: 20111212, end: 20121212
  2. PRADAXA [Suspect]
     Indication: ATRIAL FIBRILLATION
  3. PROTON PUMP INHIBITOR [Concomitant]

REACTIONS (4)
  - Anaemia [Fatal]
  - Diverticulum [Unknown]
  - Occult blood [Unknown]
  - Weight decreased [Unknown]
